FAERS Safety Report 24331648 (Version 2)
Quarter: 2024Q3

REPORT INFORMATION
  Report Type: Spontaneous
  Country: US (occurrence: US)
  Receive Date: 20240918
  Receipt Date: 20240926
  Transmission Date: 20241017
  Serious: Yes (Hospitalization)
  Sender: BRISTOL MYERS SQUIBB
  Company Number: US-BRISTOL-MYERS SQUIBB COMPANY-2024-148066

PATIENT
  Age: 80 Year
  Sex: Male
  Weight: 66.22 kg

DRUGS (1)
  1. REVLIMID [Suspect]
     Active Substance: LENALIDOMIDE
     Indication: Diffuse large B-cell lymphoma
     Dosage: ONCE DAILY FOR 21 DAYS ON THEN 7 DAYS OFF
     Route: 048
     Dates: start: 202406

REACTIONS (4)
  - Haemoglobin decreased [Recovering/Resolving]
  - Oropharyngeal discomfort [Recovering/Resolving]
  - Ulcer haemorrhage [Recovering/Resolving]
  - Off label use [Unknown]
